FAERS Safety Report 11468574 (Version 3)
Quarter: 2015Q3

REPORT INFORMATION
  Report Type: Report from Study
  Country: NL (occurrence: NL)
  Receive Date: 20150908
  Receipt Date: 20150923
  Transmission Date: 20151125
  Serious: Yes (Death, Hospitalization)
  Sender: FDA-Public Use
  Company Number: NL-GLAXOSMITHKLINE-NL2015GSK126606

PATIENT
  Age: 64 Year

DRUGS (2)
  1. TYKERB [Suspect]
     Active Substance: LAPATINIB DITOSYLATE
     Indication: PANCREATIC CARCINOMA
     Dosage: 500 MG, UNK
     Route: 048
     Dates: start: 20150728, end: 20150826
  2. TRAMETINIB [Suspect]
     Active Substance: TRAMETINIB
     Indication: PANCREATIC CARCINOMA
     Dosage: 1 MG, UNK
     Route: 048
     Dates: start: 20150728, end: 20150826

REACTIONS (1)
  - Pain [Fatal]

NARRATIVE: CASE EVENT DATE: 20150831
